FAERS Safety Report 24556688 (Version 1)
Quarter: 2024Q4

REPORT INFORMATION
  Report Type: Spontaneous
  Country: KR (occurrence: KR)
  Receive Date: 20241028
  Receipt Date: 20241028
  Transmission Date: 20250114
  Serious: Yes (Other)
  Sender: MYLAN
  Company Number: KR-MYLANLABS-2024M1097329

PATIENT
  Age: 66 Year
  Sex: Female

DRUGS (2)
  1. GABAPENTIN [Suspect]
     Active Substance: GABAPENTIN
     Indication: Pain
     Dosage: 300 MILLIGRAM
     Route: 065
  2. LIMAPROST [Suspect]
     Active Substance: LIMAPROST
     Indication: Pain
     Dosage: 5 MICROGRAM
     Route: 065

REACTIONS (1)
  - Drug ineffective [Unknown]
